FAERS Safety Report 24391426 (Version 1)
Quarter: 2024Q4

REPORT INFORMATION
  Report Type: Spontaneous
  Country: DE (occurrence: DE)
  Receive Date: 20241003
  Receipt Date: 20241003
  Transmission Date: 20250115
  Serious: Yes (Death, Life-Threatening, Hospitalization, Disabling, Other)
  Sender: PFIZER
  Company Number: DE-SANDOZ-SDZ2024DE075549

PATIENT
  Age: 80 Year
  Sex: Male
  Weight: 69 kg

DRUGS (86)
  1. HYDROCORTISONE [Suspect]
     Active Substance: HYDROCORTISONE
     Dosage: 100 MG
     Route: 065
  2. HYDROCORTISONE [Suspect]
     Active Substance: HYDROCORTISONE
     Dosage: HYDROCORTISONE ACETATE
     Route: 065
  3. XYLOMETAZOLINE [Suspect]
     Active Substance: XYLOMETAZOLINE
     Indication: Dyspnoea
     Dosage: UNK
     Route: 065
  4. AMIODARONE HYDROCHLORIDE [Suspect]
     Active Substance: AMIODARONE HYDROCHLORIDE
     Indication: Off label use
     Dosage: UNK, QD
     Route: 042
  5. AMIODARONE HYDROCHLORIDE [Suspect]
     Active Substance: AMIODARONE HYDROCHLORIDE
     Indication: Intentional product misuse
     Dosage: 150 MG, QD
     Route: 042
  6. AMIODARONE HYDROCHLORIDE [Suspect]
     Active Substance: AMIODARONE HYDROCHLORIDE
     Indication: Drug therapy
     Dosage: 150 MG, QD
     Route: 065
  7. AMIODARONE HYDROCHLORIDE [Suspect]
     Active Substance: AMIODARONE HYDROCHLORIDE
     Indication: Product used for unknown indication
     Dosage: UNK, QD
     Route: 042
  8. AMIODARONE HYDROCHLORIDE [Suspect]
     Active Substance: AMIODARONE HYDROCHLORIDE
     Indication: Ventricular fibrillation
     Dosage: 150 UG, QD
     Route: 042
  9. AMIODARONE HYDROCHLORIDE [Suspect]
     Active Substance: AMIODARONE HYDROCHLORIDE
     Dosage: 150 UG, QD
     Route: 042
  10. AMIODARONE HYDROCHLORIDE [Suspect]
     Active Substance: AMIODARONE HYDROCHLORIDE
     Dosage: UNK, QD
     Route: 065
  11. AMIODARONE HYDROCHLORIDE [Suspect]
     Active Substance: AMIODARONE HYDROCHLORIDE
     Dosage: 150 UG, QD
     Route: 042
  12. AMIODARONE HYDROCHLORIDE [Suspect]
     Active Substance: AMIODARONE HYDROCHLORIDE
     Dosage: 150 UG, QD
     Route: 042
  13. AMIODARONE HYDROCHLORIDE [Suspect]
     Active Substance: AMIODARONE HYDROCHLORIDE
     Dosage: UNK, QD
     Route: 042
  14. LANSOPRAZOLE [Suspect]
     Active Substance: LANSOPRAZOLE
     Indication: Intentional product misuse
     Dosage: 30 MG, QD
     Route: 048
  15. LANSOPRAZOLE [Suspect]
     Active Substance: LANSOPRAZOLE
     Indication: Off label use
     Dosage: 30 MG, QD
     Route: 048
  16. LANSOPRAZOLE [Suspect]
     Active Substance: LANSOPRAZOLE
     Indication: Antacid therapy
     Dosage: 30 MG, QD
     Route: 048
  17. LANSOPRAZOLE [Suspect]
     Active Substance: LANSOPRAZOLE
     Dosage: 30 MG, QD
     Route: 048
  18. LANSOPRAZOLE [Suspect]
     Active Substance: LANSOPRAZOLE
     Dosage: UNK
     Route: 065
  19. LANSOPRAZOLE [Suspect]
     Active Substance: LANSOPRAZOLE
     Dosage: 30 MG, QD
     Route: 048
  20. METAMIZOLE SODIUM [Suspect]
     Active Substance: METAMIZOLE SODIUM
     Indication: Vitamin supplementation
     Dosage: 5 MG, QD
  21. METAMIZOLE SODIUM [Suspect]
     Active Substance: METAMIZOLE SODIUM
     Indication: Intentional product misuse
  22. HYDROMORPHONE [Suspect]
     Active Substance: HYDROMORPHONE
     Indication: Analgesic therapy
     Dosage: 250 MG, QD
     Route: 042
  23. HYDROMORPHONE [Suspect]
     Active Substance: HYDROMORPHONE
     Dosage: 1 MG
     Route: 058
  24. HYDROMORPHONE [Suspect]
     Active Substance: HYDROMORPHONE
     Dosage: 6 MG
     Route: 058
  25. HYDROMORPHONE [Suspect]
     Active Substance: HYDROMORPHONE
     Dosage: 1 MG
     Route: 058
  26. HYDROMORPHONE [Suspect]
     Active Substance: HYDROMORPHONE
     Dosage: 1 MG
     Route: 058
  27. HYDROMORPHONE [Suspect]
     Active Substance: HYDROMORPHONE
     Dosage: 6 MG, QID
     Route: 058
  28. HYDROMORPHONE [Suspect]
     Active Substance: HYDROMORPHONE
     Dosage: 1 MG
     Route: 058
  29. CEFTRIAXONE [Suspect]
     Active Substance: CEFTRIAXONE
     Indication: Bacterial infection
     Dosage: 2 MG
     Route: 042
  30. CEFTRIAXONE [Suspect]
     Active Substance: CEFTRIAXONE
     Dosage: 2 G, 1X/DAY (CEFTRIAXONE SODIUM)
     Route: 042
  31. CEFTRIAXONE [Suspect]
     Active Substance: CEFTRIAXONE
     Dosage: 2 G, QD
     Route: 042
  32. CEFTRIAXONE [Suspect]
     Active Substance: CEFTRIAXONE
     Dosage: UNK
     Route: 042
  33. CEFTRIAXONE [Suspect]
     Active Substance: CEFTRIAXONE
     Dosage: 2 G
     Route: 042
  34. CEFTRIAXONE [Suspect]
     Active Substance: CEFTRIAXONE
     Dosage: 2 G
     Route: 042
  35. CEFTRIAXONE [Suspect]
     Active Substance: CEFTRIAXONE
     Dosage: QD
     Route: 042
  36. CEFTRIAXONE [Suspect]
     Active Substance: CEFTRIAXONE
     Dosage: UNK
     Route: 042
  37. CEFTRIAXONE [Suspect]
     Active Substance: CEFTRIAXONE
     Dosage: UNK
     Route: 042
  38. GABAPENTIN [Suspect]
     Active Substance: GABAPENTIN
     Indication: Bacterial infection
     Dosage: UNK
     Route: 048
  39. GABAPENTIN [Suspect]
     Active Substance: GABAPENTIN
     Indication: Intentional product misuse
     Dosage: 100 MG, QD
     Route: 048
  40. GABAPENTIN [Suspect]
     Active Substance: GABAPENTIN
     Indication: Off label use
     Dosage: 10 MG, QD
     Route: 048
  41. GABAPENTIN [Suspect]
     Active Substance: GABAPENTIN
     Indication: Neuralgia
     Dosage: 100 MG, 1X/DAY
     Route: 048
  42. GABAPENTIN [Suspect]
     Active Substance: GABAPENTIN
     Dosage: UNK
     Route: 048
  43. ALBUTEROL [Suspect]
     Active Substance: ALBUTEROL
     Indication: Thrombosis
     Dosage: 4 DF, QD
     Route: 065
  44. ALBUTEROL [Suspect]
     Active Substance: ALBUTEROL
     Indication: Chronic obstructive pulmonary disease
     Dosage: UNK
     Route: 065
  45. ALBUTEROL [Suspect]
     Active Substance: ALBUTEROL
     Dosage: UNK
     Route: 055
  46. ALBUTEROL [Suspect]
     Active Substance: ALBUTEROL
     Dosage: 2.5 ML
     Route: 065
  47. ALBUTEROL [Suspect]
     Active Substance: ALBUTEROL
     Dosage: 1 DF, QID
     Route: 065
  48. ALBUTEROL [Suspect]
     Active Substance: ALBUTEROL
     Dosage: UNK
     Route: 050
  49. ALBUTEROL [Suspect]
     Active Substance: ALBUTEROL
     Dosage: UNK
     Route: 065
  50. ALBUTEROL [Suspect]
     Active Substance: ALBUTEROL
     Dosage: 4 DF, 1X/DAY
     Route: 055
  51. ALBUTEROL [Suspect]
     Active Substance: ALBUTEROL
     Dosage: QD
     Route: 050
  52. ALBUTEROL [Suspect]
     Active Substance: ALBUTEROL
     Dosage: ROUTE OF ADMIN (FREE TEXT): RESPIRATORY (INHALATION)
     Route: 065
  53. ALBUTEROL [Suspect]
     Active Substance: ALBUTEROL
     Dosage: 4 DF, QD
     Route: 065
  54. ALBUTEROL [Suspect]
     Active Substance: ALBUTEROL
     Dosage: DOSAGE TEXT: 2.5 ML, PRN (4GM/100ML SOLUTION UNASSIGNED)
     Route: 065
  55. ALBUTEROL [Suspect]
     Active Substance: ALBUTEROL
     Dosage: 2.5 ML, QD
     Route: 065
  56. SIMVASTATIN [Suspect]
     Active Substance: SIMVASTATIN
     Indication: Blood cholesterol increased
     Dosage: UNK
     Route: 048
  57. SIMVASTATIN [Suspect]
     Active Substance: SIMVASTATIN
     Indication: Off label use
     Dosage: UNK
     Route: 048
  58. SIMVASTATIN [Suspect]
     Active Substance: SIMVASTATIN
     Indication: Vitamin supplementation
     Dosage: UNK
     Route: 065
  59. SIMVASTATIN [Suspect]
     Active Substance: SIMVASTATIN
     Dosage: 40 MG, QD
     Route: 048
  60. SIMVASTATIN [Suspect]
     Active Substance: SIMVASTATIN
     Dosage: 40 MG, QD
     Route: 048
  61. ONDANSETRON HYDROCHLORIDE [Suspect]
     Active Substance: ONDANSETRON HYDROCHLORIDE
     Indication: Off label use
     Dosage: 36 MG
     Route: 042
  62. ONDANSETRON HYDROCHLORIDE [Suspect]
     Active Substance: ONDANSETRON HYDROCHLORIDE
     Indication: Vomiting
     Dosage: 4 MG, QD
     Route: 042
  63. ONDANSETRON HYDROCHLORIDE [Suspect]
     Active Substance: ONDANSETRON HYDROCHLORIDE
     Dosage: 12 MG
     Route: 042
  64. ONDANSETRON HYDROCHLORIDE [Suspect]
     Active Substance: ONDANSETRON HYDROCHLORIDE
     Dosage: 12 MG
     Route: 065
  65. ONDANSETRON HYDROCHLORIDE [Suspect]
     Active Substance: ONDANSETRON HYDROCHLORIDE
     Dosage: 24 MG
     Route: 065
  66. ONDANSETRON HYDROCHLORIDE [Suspect]
     Active Substance: ONDANSETRON HYDROCHLORIDE
     Dosage: 40 MG
  67. ONDANSETRON HYDROCHLORIDE [Suspect]
     Active Substance: ONDANSETRON HYDROCHLORIDE
     Dosage: 4 MG, TID
     Route: 042
  68. ONDANSETRON HYDROCHLORIDE [Suspect]
     Active Substance: ONDANSETRON HYDROCHLORIDE
     Dosage: UNK
  69. ONDANSETRON HYDROCHLORIDE [Suspect]
     Active Substance: ONDANSETRON HYDROCHLORIDE
     Dosage: 12 MG, TID
  70. ONDANSETRON HYDROCHLORIDE [Suspect]
     Active Substance: ONDANSETRON HYDROCHLORIDE
     Dosage: 1 DF
  71. ONDANSETRON HYDROCHLORIDE [Suspect]
     Active Substance: ONDANSETRON HYDROCHLORIDE
     Dosage: 8 MG, TID
  72. ONDANSETRON HYDROCHLORIDE [Suspect]
     Active Substance: ONDANSETRON HYDROCHLORIDE
     Dosage: 12 MG, TID
  73. ONDANSETRON HYDROCHLORIDE [Suspect]
     Active Substance: ONDANSETRON HYDROCHLORIDE
     Dosage: 41.14 MG
  74. ONDANSETRON HYDROCHLORIDE [Suspect]
     Active Substance: ONDANSETRON HYDROCHLORIDE
     Dosage: UNK
  75. ONDANSETRON HYDROCHLORIDE [Suspect]
     Active Substance: ONDANSETRON HYDROCHLORIDE
     Dosage: 4 MG
  76. ONDANSETRON HYDROCHLORIDE [Suspect]
     Active Substance: ONDANSETRON HYDROCHLORIDE
     Dosage: 4 MG, TID
  77. ONDANSETRON HYDROCHLORIDE [Suspect]
     Active Substance: ONDANSETRON HYDROCHLORIDE
     Dosage: 1 DF, TID
     Route: 042
  78. ONDANSETRON HYDROCHLORIDE [Suspect]
     Active Substance: ONDANSETRON HYDROCHLORIDE
     Dosage: 40 MG
     Route: 042
  79. ONDANSETRON HYDROCHLORIDE [Suspect]
     Active Substance: ONDANSETRON HYDROCHLORIDE
     Dosage: 36 MG
     Route: 042
  80. AMIODARONE [Suspect]
     Active Substance: AMIODARONE
     Indication: Ventricular fibrillation
     Dosage: QD
  81. AMIODARONE [Suspect]
     Active Substance: AMIODARONE
     Indication: Drug therapy
     Dosage: UNK
     Route: 065
  82. AMIODARONE [Suspect]
     Active Substance: AMIODARONE
     Dosage: UNK
     Route: 065
  83. AMIODARONE [Suspect]
     Active Substance: AMIODARONE
     Dosage: 150 MG, QD
     Route: 065
  84. AMIODARONE [Suspect]
     Active Substance: AMIODARONE
     Dosage: 150 MG
     Route: 042
  85. AMIODARONE [Suspect]
     Active Substance: AMIODARONE
     Dosage: 150 MG, QD
     Route: 042
  86. AMIODARONE [Suspect]
     Active Substance: AMIODARONE
     Dosage: UNK
     Route: 065

REACTIONS (9)
  - Pulmonary embolism [Fatal]
  - Condition aggravated [Fatal]
  - Drug intolerance [Fatal]
  - Neuralgia [Fatal]
  - Analgesic therapy [Fatal]
  - Drug hypersensitivity [Fatal]
  - Blood uric acid increased [Fatal]
  - Off label use [Fatal]
  - Stress [Fatal]
